FAERS Safety Report 6388679-9 (Version None)
Quarter: 2009Q4

REPORT INFORMATION
  Report Type: 
  Country: None (occurrence: None)
  Receive Date: 20091005
  Receipt Date: 20090925
  Transmission Date: 20100525
  Serious: Yes (Other)
  Sender: FDA-Public Use
  Company Number: ZA-PFIZER INC-2009273902

PATIENT

DRUGS (7)
  1. LIPITOR [Suspect]
     Dosage: 20 MG, UNK
     Route: 048
     Dates: start: 20090918
  2. LIPITOR [Suspect]
     Dosage: 10 MG, UNK
     Route: 048
     Dates: start: 20080101, end: 20090918
  3. METHOTREXATE SODIUM [Concomitant]
     Indication: RHEUMATOID ARTHRITIS
     Dosage: 1 ML, WEEKLY
     Route: 042
  4. SALAZOPYRINE [Concomitant]
     Indication: RHEUMATOID ARTHRITIS
     Dosage: 1 UNK, 2X/DAY
     Route: 048
  5. DISPRIN [Concomitant]
     Dosage: 1/2 TABLET, 1X/DAY
     Route: 065
  6. ADALAT [Concomitant]
     Indication: BLOOD PRESSURE
     Dosage: 30 MG, 1X/DAY
     Route: 048
  7. CIPRAMIL [Concomitant]
     Indication: DEPRESSION
     Dosage: UNK
     Route: 048

REACTIONS (1)
  - TRISMUS [None]
